FAERS Safety Report 4302945-X (Version None)
Quarter: 2004Q1

REPORT INFORMATION
  Report Type: 
  Country: None (occurrence: None)
  Receive Date: 20040223
  Receipt Date: 20040223
  Transmission Date: 20041129
  Serious: Yes (Other)
  Sender: FDA-Public Use
  Company Number: None

PATIENT
  Age: 55 Year
  Sex: Male
  Weight: 81.6475 kg

DRUGS (2)
  1. VIAGRA [Suspect]
     Indication: ERECTILE DYSFUNCTION
     Dosage: 100 MG PRN ORAL
     Route: 048
     Dates: start: 20010710, end: 20040221
  2. BENICAR HCT [Suspect]
     Indication: HYPERTENSION
     Dosage: 10/12.5 QD ORAL
     Route: 048
     Dates: start: 20040202, end: 20040221

REACTIONS (3)
  - BLOOD PRESSURE DECREASED [None]
  - DIZZINESS [None]
  - FEELING ABNORMAL [None]
